FAERS Safety Report 24811587 (Version 1)
Quarter: 2025Q1

REPORT INFORMATION
  Report Type: Report from Study
  Country: US (occurrence: US)
  Receive Date: 20250106
  Receipt Date: 20250106
  Transmission Date: 20250409
  Serious: Yes (Other)
  Sender: TAKEDA
  Company Number: US-TAKEDA-2024TUS049055

PATIENT
  Age: 61 Year
  Sex: Female
  Weight: 50 kg

DRUGS (20)
  1. HUMAN IMMUNOGLOBULIN G\HYALURONIDASE RECOMBINANT HUMAN [Suspect]
     Active Substance: HUMAN IMMUNOGLOBULIN G\HYALURONIDASE (HUMAN RECOMBINANT)
     Indication: Stiff person syndrome
     Dosage: 50 GRAM, Q3WEEKS
     Dates: start: 20230329
  2. SODIUM CHLORIDE [Concomitant]
     Active Substance: SODIUM CHLORIDE
  3. ACETAMINOPHEN [Concomitant]
     Active Substance: ACETAMINOPHEN
  4. EPINEPHRINE [Concomitant]
     Active Substance: EPINEPHRINE
  5. CLARITIN [Concomitant]
     Active Substance: LORATADINE
  6. FLOVENT HFA [Concomitant]
     Active Substance: FLUTICASONE PROPIONATE
  7. MELATONIN [Concomitant]
     Active Substance: MELATONIN
  8. LYUMJEV [Concomitant]
     Active Substance: INSULIN LISPRO-AABC
  9. MOUNJARO [Concomitant]
     Active Substance: TIRZEPATIDE
  10. HUMALOG [Concomitant]
     Active Substance: INSULIN LISPRO
  11. BACLOFEN [Concomitant]
     Active Substance: BACLOFEN
  12. LEVEMIR [Concomitant]
     Active Substance: INSULIN DETEMIR
  13. ALBUTEROL SULFATE [Concomitant]
     Active Substance: ALBUTEROL SULFATE
  14. CHROMIUM PICOLINATE [Concomitant]
     Active Substance: CHROMIUM PICOLINATE
  15. LIDOCAINE [Concomitant]
     Active Substance: LIDOCAINE
  16. DIAZEPAM [Concomitant]
     Active Substance: DIAZEPAM
  17. DIPHENHYDRAMINE HYDROCHLORIDE [Concomitant]
     Active Substance: DIPHENHYDRAMINE HYDROCHLORIDE
  18. OMEPRAZOLE [Concomitant]
     Active Substance: OMEPRAZOLE
  19. VALTREX [Concomitant]
     Active Substance: VALACYCLOVIR HYDROCHLORIDE
  20. METFORMIN [Concomitant]
     Active Substance: METFORMIN HYDROCHLORIDE

REACTIONS (1)
  - Cataract [Unknown]

NARRATIVE: CASE EVENT DATE: 20241219
